FAERS Safety Report 10252766 (Version 1)
Quarter: 2014Q2

REPORT INFORMATION
  Report Type: Spontaneous
  Country: US (occurrence: None)
  Receive Date: 20140619
  Receipt Date: 20140619
  Transmission Date: 20141212
  Serious: Yes (Other)
  Sender: FDA-Public Use
  Company Number: None

PATIENT
  Age: 46 Year
  Sex: Female
  Weight: 65.77 kg

DRUGS (3)
  1. SOTOLOL [Suspect]
     Indication: VENTRICULAR TACHYCARDIA
     Dosage: 1 PILL, BID, ORAL
     Route: 048
     Dates: start: 20140604, end: 20140607
  2. METOPROLOL TARTRATE [Concomitant]
  3. SOTOLOL [Concomitant]

REACTIONS (5)
  - Extrasystoles [None]
  - Extrasystoles [None]
  - Feeling abnormal [None]
  - Product substitution issue [None]
  - Product quality issue [None]
